FAERS Safety Report 9148804 (Version 2)
Quarter: 2013Q2

REPORT INFORMATION
  Report Type: Spontaneous
  Country: DE (occurrence: DE)
  Receive Date: 20130308
  Receipt Date: 20130411
  Transmission Date: 20140414
  Serious: Yes (Other)
  Sender: FDA-Public Use
  Company Number: DE-JNJFOC-20130215506

PATIENT
  Age: 50 Year
  Sex: Female

DRUGS (3)
  1. XEPLION [Suspect]
     Indication: SCHIZOPHRENIA, PARANOID TYPE
     Route: 030
     Dates: start: 20120523, end: 20120803
  2. OPIPRAMOL [Concomitant]
     Indication: TENSION
     Dosage: 50-100 MG
     Route: 048
     Dates: start: 20120628
  3. OPIPRAMOL [Concomitant]
     Indication: RESTLESSNESS
     Dosage: 50-100 MG
     Route: 048
     Dates: start: 20120628

REACTIONS (2)
  - Blood glucose increased [Recovering/Resolving]
  - Glycosylated haemoglobin increased [Recovering/Resolving]
